FAERS Safety Report 13668678 (Version 1)
Quarter: 2017Q2

REPORT INFORMATION
  Report Type: Spontaneous
  Country: US (occurrence: US)
  Receive Date: 20170620
  Receipt Date: 20170620
  Transmission Date: 20170830
  Serious: Yes (Hospitalization)
  Sender: FDA-Public Use
  Company Number: None

PATIENT
  Age: 68 Year
  Sex: Female
  Weight: 105.5 kg

DRUGS (1)
  1. TAXOL [Suspect]
     Active Substance: PACLITAXEL
     Dates: end: 20170605

REACTIONS (4)
  - Hypotension [None]
  - Diarrhoea [None]
  - Chest pain [None]
  - Urinary tract infection [None]

NARRATIVE: CASE EVENT DATE: 20170605
